FAERS Safety Report 20574093 (Version 1)
Quarter: 2022Q1

REPORT INFORMATION
  Report Type: Spontaneous
  Country: US (occurrence: US)
  Receive Date: 20220309
  Receipt Date: 20220309
  Transmission Date: 20220423
  Serious: No
  Sender: FDA-Public Use
  Company Number: US-PFIZER INC-202101151048

PATIENT
  Age: 50 Year
  Sex: Female
  Weight: 78 kg

DRUGS (1)
  1. XELJANZ [Suspect]
     Active Substance: TOFACITINIB CITRATE
     Indication: COVID-19
     Dosage: 5 MG, 1X/DAY
     Route: 048
     Dates: start: 20210901

REACTIONS (3)
  - Suspected COVID-19 [Unknown]
  - Illness [Unknown]
  - Off label use [Unknown]

NARRATIVE: CASE EVENT DATE: 20210901
